FAERS Safety Report 12382024 (Version 1)
Quarter: 2016Q2

REPORT INFORMATION
  Report Type: Spontaneous
  Country: US (occurrence: None)
  Receive Date: 20160517
  Receipt Date: 20160517
  Transmission Date: 20160815
  Serious: Yes (Hospitalization)
  Sender: FDA-Public Use
  Company Number: None

PATIENT
  Age: 45 Year
  Sex: Male
  Weight: 81.6 kg

DRUGS (8)
  1. ASPIRIN. [Concomitant]
     Active Substance: ASPIRIN
  2. HALOPERIDOL. [Concomitant]
     Active Substance: HALOPERIDOL
  3. LACTULOSE. [Concomitant]
     Active Substance: LACTULOSE
  4. BENZTROPINE [Concomitant]
     Active Substance: BENZTROPINE
  5. DIVALPROEX SODIUM ER TABS, 500 MG [Suspect]
     Active Substance: DIVALPROEX SODIUM
     Indication: MOOD ALTERED
     Route: 048
     Dates: start: 20151226, end: 20160515
  6. CLOZAPINE. [Concomitant]
     Active Substance: CLOZAPINE
  7. NICOTINE. [Concomitant]
     Active Substance: NICOTINE
  8. PANTOPROZOLE [Concomitant]

REACTIONS (1)
  - Drug level decreased [None]

NARRATIVE: CASE EVENT DATE: 20160505
